FAERS Safety Report 4982304-7 (Version None)
Quarter: 2006Q2

REPORT INFORMATION
  Report Type: 
  Country: None (occurrence: None)
  Receive Date: 20060425
  Receipt Date: 20060208
  Transmission Date: 20061013
  Serious: Yes (Disabling)
  Sender: FDA-Public Use
  Company Number: JP-ROCHE-436308

PATIENT
  Age: 41 Year
  Sex: Female

DRUGS (2)
  1. TAMIFLU [Suspect]
     Route: 048
     Dates: start: 20060110, end: 20060110
  2. CALONAL [Concomitant]
     Route: 048
     Dates: start: 20060110, end: 20060110

REACTIONS (2)
  - URTICARIA [None]
  - VISUAL DISTURBANCE [None]
